FAERS Safety Report 14478844 (Version 1)
Quarter: 2018Q1

REPORT INFORMATION
  Report Type: Spontaneous
  Country: US (occurrence: US)
  Receive Date: 20180202
  Receipt Date: 20180202
  Transmission Date: 20180509
  Serious: No
  Sender: FDA-Public Use
  Company Number: US-PFIZER INC-2018040567

PATIENT
  Sex: Female

DRUGS (1)
  1. ALPRAZOLAM. [Suspect]
     Active Substance: ALPRAZOLAM
     Dosage: UNK (REPORTED AS ^2MG TABLET AND BREAKING IT^ AND TAKEN 3 PIECES OVER A 7 HOUR TIME SPAN)

REACTIONS (2)
  - Anxiety [Unknown]
  - Drug ineffective [Unknown]
